FAERS Safety Report 6962248-1 (Version None)
Quarter: 2010Q3

REPORT INFORMATION
  Report Type: 
  Country: None (occurrence: None)
  Receive Date: 20100901
  Receipt Date: 20100901
  Transmission Date: 20110219
  Serious: Yes (Other)
  Sender: FDA-Public Use
  Company Number: None

PATIENT
  Age: 58 Year
  Sex: Female

DRUGS (1)
  1. TARCEVA [Suspect]
     Indication: LUNG NEOPLASM MALIGNANT
     Dosage: 150MG ONCE A DAY PO
     Route: 048
     Dates: start: 20100628, end: 20100831

REACTIONS (2)
  - PHOTOSENSITIVITY REACTION [None]
  - RASH ERYTHEMATOUS [None]
